FAERS Safety Report 19737262 (Version 2)
Quarter: 2021Q3

REPORT INFORMATION
  Report Type: Spontaneous
  Country: AU (occurrence: AU)
  Receive Date: 20210823
  Receipt Date: 20210904
  Transmission Date: 20211014
  Serious: Yes (Other)
  Sender: FDA-Public Use
  Company Number: AU-TAKEDA-2021TUS041479

PATIENT
  Age: 36 Year
  Sex: Female
  Weight: 120 kg

DRUGS (3)
  1. CUVITRU [Suspect]
     Active Substance: HUMAN IMMUNOGLOBULIN G
     Indication: IMMUNODEFICIENCY COMMON VARIABLE
     Dosage: 2 DOSAGE FORM, 1/WEEK
     Route: 058
     Dates: start: 20210616, end: 20210623
  2. CITALOPRAM [Concomitant]
     Active Substance: CITALOPRAM HYDROBROMIDE
     Indication: DEPRESSION
     Dosage: UNK
     Route: 048
  3. CUVITRU [Suspect]
     Active Substance: HUMAN IMMUNOGLOBULIN G
     Dosage: 2 DOSAGE FORM, 1/WEEK
     Route: 058
     Dates: start: 20210616, end: 20210623

REACTIONS (13)
  - Sarcoidosis [Unknown]
  - Drug reaction with eosinophilia and systemic symptoms [Unknown]
  - Periorbital oedema [Not Recovered/Not Resolved]
  - Meningitis aseptic [Unknown]
  - Eczema [Recovering/Resolving]
  - Injection site reaction [Recovering/Resolving]
  - Rash [Recovering/Resolving]
  - VIth nerve paralysis [Not Recovered/Not Resolved]
  - Infusion site rash [Recovering/Resolving]
  - IVth nerve paralysis [Unknown]
  - Alopecia [Not Recovered/Not Resolved]
  - Headache [Unknown]
  - Eosinophilia [Unknown]

NARRATIVE: CASE EVENT DATE: 20210618
